FAERS Safety Report 21731671 (Version 1)
Quarter: 2022Q4

REPORT INFORMATION
  Report Type: Spontaneous
  Country: US (occurrence: US)
  Receive Date: 20221215
  Receipt Date: 20221215
  Transmission Date: 20230113
  Serious: No
  Sender: FDA-Public Use
  Company Number: US-LA JOLLA PHARMACEUTICAL COMPANY-0000414

PATIENT

DRUGS (1)
  1. GIAPREZA [Suspect]
     Active Substance: ANGIOTENSIN II
     Indication: Septic shock

REACTIONS (1)
  - Mean arterial pressure decreased [Recovered/Resolved]
